FAERS Safety Report 23745101 (Version 2)
Quarter: 2024Q2

REPORT INFORMATION
  Report Type: Report from Study
  Country: CA (occurrence: CA)
  Receive Date: 20240416
  Receipt Date: 20240417
  Transmission Date: 20240716
  Serious: Yes (Other)
  Sender: FDA-Public Use
  Company Number: CA-ABBVIE-5719350

PATIENT
  Age: 30 Year
  Sex: Male

DRUGS (1)
  1. RINVOQ [Suspect]
     Active Substance: UPADACITINIB
     Indication: Crohn^s disease
     Dosage: FORM STRENGTH: 30 MILLIGRAM
     Route: 048
     Dates: start: 20231205

REACTIONS (5)
  - Ostomy bag placement [Unknown]
  - Product residue present [Unknown]
  - Endoscopy small intestine [Unknown]
  - C-reactive protein increased [Unknown]
  - Subileus [Unknown]

NARRATIVE: CASE EVENT DATE: 20240301
